FAERS Safety Report 5731172-4 (Version None)
Quarter: 2008Q2

REPORT INFORMATION
  Report Type: 
  Country: None (occurrence: None)
  Receive Date: 20080507
  Receipt Date: 20080506
  Transmission Date: 20081010
  Serious: Yes (Hospitalization)
  Sender: FDA-Public Use
  Company Number: BR-BOEHRINGER INGELHEIM GMBH, GERMANY-2008-DE-02673GD

PATIENT
  Age: 45 Year
  Sex: Male
  Weight: 75 kg

DRUGS (10)
  1. MORPHINE [Suspect]
     Indication: SPINAL ANAESTHESIA
  2. NALOXONE [Suspect]
     Indication: VOMITING
     Dosage: 0.4 MG FOLLOWED BY 0.1 MG/H, WHICH WAS ADJUSTED TO 0.2 MG/H UNTIL RESOLUTION OF SYMPTOMS
  3. NALOXONE [Suspect]
     Indication: HYPERHIDROSIS
  4. FENTANYL [Concomitant]
     Route: 042
  5. MIDAZOLAM HCL [Concomitant]
     Route: 042
  6. CEPHALOTHIN [Concomitant]
     Route: 042
  7. DEXAMETHASONE [Concomitant]
     Route: 042
  8. BUPIVACAINE [Concomitant]
     Indication: SPINAL ANAESTHESIA
  9. LIDOCAINE [Concomitant]
  10. ONDANSETRON [Concomitant]

REACTIONS (5)
  - ACCIDENTAL OVERDOSE [None]
  - ATRIAL FIBRILLATION [None]
  - HYPERHIDROSIS [None]
  - URINARY RETENTION [None]
  - VOMITING [None]
